FAERS Safety Report 6406475-0 (Version None)
Quarter: 2009Q4

REPORT INFORMATION
  Report Type: 
  Country: None (occurrence: None)
  Receive Date: 20091019
  Receipt Date: 20091007
  Transmission Date: 20100525
  Serious: Yes (Congenital Anomaly, Other)
  Sender: FDA-Public Use
  Company Number: FR-JNJCH-2009027066

PATIENT
  Sex: Female

DRUGS (1)
  1. ALOSTIL 2% [Suspect]
     Indication: DRUG EXPOSURE DURING PREGNANCY
     Dosage: DAILY DOSE:60MG-TEXT:60 MG - 6 SPRAYS IN THE MORNING
     Route: 064
     Dates: start: 19940301, end: 19940801

REACTIONS (2)
  - DRUG EXPOSURE DURING PREGNANCY [None]
  - HYPERTRICHOSIS [None]
